FAERS Safety Report 13298218 (Version 1)
Quarter: 2017Q1

REPORT INFORMATION
  Report Type: Spontaneous
  Country: US (occurrence: US)
  Receive Date: 20170306
  Receipt Date: 20170306
  Transmission Date: 20170428
  Serious: Yes (Hospitalization)
  Sender: FDA-Public Use
  Company Number: None

PATIENT
  Age: 64 Year
  Sex: Male
  Weight: 99.1 kg

DRUGS (1)
  1. SIMVASTATIN. [Suspect]
     Active Substance: SIMVASTATIN
     Indication: HYPERLIPIDAEMIA
     Route: 048
     Dates: start: 20090401, end: 20170209

REACTIONS (4)
  - Chronic obstructive pulmonary disease [None]
  - Influenza [None]
  - Rhabdomyolysis [None]
  - Fall [None]

NARRATIVE: CASE EVENT DATE: 20170209
